FAERS Safety Report 16771325 (Version 1)
Quarter: 2019Q3

REPORT INFORMATION
  Report Type: Spontaneous
  Country: US (occurrence: US)
  Receive Date: 20190904
  Receipt Date: 20190904
  Transmission Date: 20191005
  Serious: No
  Sender: FDA-Public Use
  Company Number: US-BAYER-2019-159952

PATIENT
  Sex: Male

DRUGS (4)
  1. ALEVE [Suspect]
     Active Substance: NAPROXEN SODIUM
     Indication: INFLAMMATION
     Route: 048
  2. TYLENOL [Concomitant]
     Active Substance: ACETAMINOPHEN
  3. IBUPROFEN. [Concomitant]
     Active Substance: IBUPROFEN
  4. ALEVE [Suspect]
     Active Substance: NAPROXEN SODIUM
     Indication: NERVE COMPRESSION

REACTIONS (3)
  - Off label use [Unknown]
  - Drug effective for unapproved indication [Unknown]
  - Adverse drug reaction [None]
